FAERS Safety Report 18648239 (Version 1)
Quarter: 2020Q4

REPORT INFORMATION
  Report Type: Other
  Country: CZ (occurrence: CZ)
  Receive Date: 20201222
  Receipt Date: 20201222
  Transmission Date: 20210114
  Serious: Yes (Other)
  Sender: FDA-Public Use
  Company Number: CZ-ROCHE-2735686

PATIENT
  Age: 7 Decade
  Sex: Male

DRUGS (4)
  1. BEVACIZUMAB. [Suspect]
     Active Substance: BEVACIZUMAB
     Indication: INTESTINAL ADENOCARCINOMA
     Route: 065
     Dates: start: 201407, end: 201507
  2. FLUOROURACIL. [Suspect]
     Active Substance: FLUOROURACIL
     Indication: INTESTINAL ADENOCARCINOMA
     Route: 065
     Dates: start: 201407, end: 201507
  3. FOLINIC ACID [Suspect]
     Active Substance: LEUCOVORIN
     Indication: INTESTINAL ADENOCARCINOMA
     Route: 065
     Dates: start: 201407, end: 201507
  4. OXALIPLATIN. [Suspect]
     Active Substance: OXALIPLATIN
     Indication: INTESTINAL ADENOCARCINOMA
     Route: 065
     Dates: start: 201407, end: 201507

REACTIONS (3)
  - Hypersensitivity [Unknown]
  - Neurotoxicity [Unknown]
  - Skin toxicity [Unknown]
